FAERS Safety Report 13299980 (Version 1)
Quarter: 2017Q1

REPORT INFORMATION
  Report Type: Spontaneous
  Country: IN (occurrence: IN)
  Receive Date: 20170306
  Receipt Date: 20170306
  Transmission Date: 20170428
  Serious: Yes (Other)
  Sender: FDA-Public Use
  Company Number: IN-IMPAX LABORATORIES, INC-2017-IPXL-00499

PATIENT
  Age: 15 Year
  Sex: Male

DRUGS (1)
  1. CHLOROQUINE PHOSPHATE. [Suspect]
     Active Substance: CHLOROQUINE PHOSPHATE
     Indication: PYREXIA
     Dosage: 6 TABLETS FOR A DAY IN TWO DIVIDED DOSES
     Route: 065

REACTIONS (1)
  - Mania [Recovered/Resolved]
